FAERS Safety Report 23962504 (Version 1)
Quarter: 2024Q2

REPORT INFORMATION
  Report Type: Spontaneous
  Country: RU (occurrence: None)
  Receive Date: 20240611
  Receipt Date: 20240611
  Transmission Date: 20240716
  Serious: Yes (Hospitalization, Other)
  Sender: FDA-Public Use
  Company Number: 2024A131912

PATIENT
  Age: 36 Year
  Sex: Female
  Weight: 62 kg

DRUGS (2)
  1. BUDESONIDE\FORMOTEROL [Suspect]
     Active Substance: BUDESONIDE\FORMOTEROL
     Indication: Asthma
     Dosage: 4.5/160 ?G (TWO DOSES TWICE DAILY; BUDESONIDE 640 ?G/DAY
     Route: 055
  2. BUDESONIDE [Suspect]
     Active Substance: BUDESONIDE
     Indication: Asthma
     Dosage: HE POLLEN SEASON
     Route: 055

REACTIONS (5)
  - Asthma [Recovering/Resolving]
  - General physical health deterioration [Recovering/Resolving]
  - Sinusitis [Recovering/Resolving]
  - Blood immunoglobulin E increased [Unknown]
  - Eosinophil count increased [Recovering/Resolving]

NARRATIVE: CASE EVENT DATE: 20200101
